FAERS Safety Report 5878716-X (Version None)
Quarter: 2008Q3

REPORT INFORMATION
  Report Type: 
  Country: None (occurrence: None)
  Receive Date: 20080912
  Receipt Date: 20080910
  Transmission Date: 20090109
  Serious: Yes (Death, Other)
  Sender: FDA-Public Use
  Company Number: JP-JNJFOC-20080606495

PATIENT
  Sex: Male
  Weight: 44 kg

DRUGS (8)
  1. ITRIZOLE [Suspect]
     Route: 041
  2. ITRIZOLE [Suspect]
     Indication: PULMONARY MYCOSIS
     Route: 041
  3. RIFAMPICIN [Interacting]
     Indication: PULMONARY TUBERCULOSIS
     Route: 048
  4. AMPHOTERICIN B [Concomitant]
     Route: 065
  5. ISONIAZID [Concomitant]
     Indication: PULMONARY TUBERCULOSIS
     Route: 048
  6. ETHAMBUTOL HCL [Concomitant]
     Indication: PULMONARY TUBERCULOSIS
     Route: 048
  7. PYRAZINAMIDE [Concomitant]
     Indication: PULMONARY TUBERCULOSIS
     Route: 048
  8. MICAFUNGIN SODIUM [Concomitant]
     Route: 065

REACTIONS (4)
  - CONDITION AGGRAVATED [None]
  - DEATH [None]
  - DRUG INTERACTION [None]
  - PYREXIA [None]
